FAERS Safety Report 9170191 (Version 1)
Quarter: 2013Q1

REPORT INFORMATION
  Report Type: Spontaneous
  Country: US (occurrence: None)
  Receive Date: 20130315
  Receipt Date: 20130315
  Transmission Date: 20140127
  Serious: Yes (Life-Threatening)
  Sender: FDA-Public Use
  Company Number: None

PATIENT
  Age: 53 Year
  Sex: Male

DRUGS (1)
  1. NEXAVAR 200MG BAYER [Suspect]
     Indication: HEPATIC CANCER
     Route: 048
     Dates: start: 20130117, end: 20130121

REACTIONS (4)
  - Rash [None]
  - Pruritus [None]
  - Haemorrhage [None]
  - Pulmonary oedema [None]
